FAERS Safety Report 7569368-1 (Version None)
Quarter: 2011Q2

REPORT INFORMATION
  Report Type: 
  Country: None (occurrence: None)
  Receive Date: 20110623
  Receipt Date: 20110617
  Transmission Date: 20111010
  Serious: Yes (Hospitalization, Disabling)
  Sender: FDA-Public Use
  Company Number: CA-B.I. PHARMACEUTICALS,INC./RIDGEFIELD-2011-CN-00805CN

PATIENT
  Age: 86 Year
  Sex: Female
  Weight: 38.55 kg

DRUGS (9)
  1. ARICEPT [Suspect]
     Indication: DEMENTIA
     Dosage: ONCE DAILY IN MORNING
     Route: 048
     Dates: start: 20100629, end: 20100713
  2. RAMIPRIL [Suspect]
     Indication: TRANSIENT ISCHAEMIC ATTACK
     Route: 065
     Dates: start: 20100601
  3. TYLENOL W/ CODEINE NO. 3 [Concomitant]
     Indication: PAIN IN EXTREMITY
  4. ROBAXICIN [Concomitant]
     Indication: GROIN PAIN
     Dates: start: 20100601
  5. AGGRENOX [Suspect]
     Indication: TRANSIENT ISCHAEMIC ATTACK
     Route: 065
     Dates: start: 20100601
  6. SINEMET [Concomitant]
     Indication: PARKINSON'S DISEASE
  7. ROBAXICIN [Concomitant]
     Indication: PAIN IN EXTREMITY
  8. ASPIRIN [Concomitant]
  9. TYLENOL W/ CODEINE NO. 3 [Concomitant]
     Indication: GROIN PAIN
     Dates: start: 20100601

REACTIONS (5)
  - CONVULSION [None]
  - DECREASED APPETITE [None]
  - BLOOD PRESSURE ORTHOSTATIC DECREASED [None]
  - SYNCOPE [None]
  - GASTROOESOPHAGEAL REFLUX DISEASE [None]
